FAERS Safety Report 17045476 (Version 1)
Quarter: 2019Q4

REPORT INFORMATION
  Report Type: Report from Study
  Country: None (occurrence: ES)
  Receive Date: 20191118
  Receipt Date: 20191118
  Transmission Date: 20200122
  Serious: Yes (Life-Threatening, Hospitalization, Other)
  Sender: FDA-Public Use
  Company Number: ES-ABBVIE-19P-144-3000796-00

PATIENT
  Age: 75 Year
  Sex: Male
  Weight: 62 kg

DRUGS (13)
  1. PLETAL [Concomitant]
     Active Substance: CILOSTAZOL
     Indication: ANTICOAGULANT THERAPY
     Route: 048
     Dates: start: 19950101
  2. SINTROM [Concomitant]
     Active Substance: ACENOCOUMAROL
     Indication: COAGULOPATHY
     Route: 048
     Dates: start: 1995
  3. INSULIN [Concomitant]
     Active Substance: INSULIN NOS
     Indication: DIABETES MELLITUS
     Route: 058
     Dates: start: 19950101
  4. SIMVASTATINE [Concomitant]
     Active Substance: SIMVASTATIN
     Indication: HYPERCHOLESTEROLAEMIA
     Route: 048
     Dates: start: 19960101
  5. TICLOPIDINA [Concomitant]
     Active Substance: TICLOPIDINE
     Indication: ANTICOAGULANT THERAPY
     Route: 048
     Dates: start: 19980101
  6. BISOPROLOL [Concomitant]
     Active Substance: BISOPROLOL
     Indication: CARDIAC FAILURE
     Route: 048
     Dates: start: 20181203
  7. HUMIRA [Suspect]
     Active Substance: ADALIMUMAB
     Route: 058
     Dates: start: 20180524
  8. ENALAPRIL [Concomitant]
     Active Substance: ENALAPRIL
     Indication: HYPERTENSION
     Route: 048
     Dates: start: 1996
  9. METHOTREXATE. [Concomitant]
     Active Substance: METHOTREXATE
     Indication: COLITIS ULCERATIVE
     Route: 058
     Dates: start: 20070404
  10. ACFOL [Concomitant]
     Active Substance: FOLIC ACID
     Indication: ADJUVANT THERAPY
     Route: 048
     Dates: start: 20070404
  11. CARVEDILOL. [Concomitant]
     Active Substance: CARVEDILOL
     Indication: CARDIAC FAILURE
     Route: 048
     Dates: start: 20020101
  12. OMEPRAZOL [Concomitant]
     Active Substance: OMEPRAZOLE
     Indication: GASTROINTESTINAL DISORDER PROPHYLAXIS
     Route: 048
     Dates: start: 19960101
  13. HUMIRA [Suspect]
     Active Substance: ADALIMUMAB
     Indication: COLITIS ULCERATIVE
     Route: 058
     Dates: start: 20100430, end: 20180523

REACTIONS (1)
  - Arterial stenosis [Recovered/Resolved]

NARRATIVE: CASE EVENT DATE: 20190821
